FAERS Safety Report 8999858 (Version 2)
Quarter: 2013Q1

REPORT INFORMATION
  Report Type: Spontaneous
  Country: JP (occurrence: JP)
  Receive Date: 20130102
  Receipt Date: 20130129
  Transmission Date: 20140127
  Serious: Yes (Other)
  Sender: FDA-Public Use
  Company Number: JP-PFIZER INC-2012311986

PATIENT
  Age: 94 Year
  Sex: Male

DRUGS (1)
  1. DETRUSITOL [Suspect]
     Indication: URINARY INCONTINENCE
     Dosage: 2 MG, 1X/DAY
     Route: 048
     Dates: start: 20121126, end: 20121210

REACTIONS (1)
  - Dementia [Unknown]
